FAERS Safety Report 4346180-8 (Version None)
Quarter: 2004Q2

REPORT INFORMATION
  Report Type: 
  Country: None (occurrence: None)
  Receive Date: 20040423
  Receipt Date: 20040423
  Transmission Date: 20050107
  Serious: Yes (Other)
  Sender: FDA-Public Use
  Company Number: None

PATIENT
  Age: 37 Year
  Sex: Male
  Weight: 103 kg

DRUGS (4)
  1. ZOSYN [Suspect]
     Indication: OSTEOMYELITIS
     Dosage: 3.375G Q8HOUR IV
     Route: 042
     Dates: start: 20040421, end: 20040422
  2. VICODIN [Concomitant]
  3. IBUPROFEN [Concomitant]
  4. VANCOMYCIN [Concomitant]

REACTIONS (2)
  - CHILLS [None]
  - PYREXIA [None]
